FAERS Safety Report 18585837 (Version 1)
Quarter: 2020Q4

REPORT INFORMATION
  Report Type: Spontaneous
  Country: AU (occurrence: AU)
  Receive Date: 20201207
  Receipt Date: 20201207
  Transmission Date: 20210114
  Serious: Yes (Other)
  Sender: FDA-Public Use
  Company Number: NVSC2020AU309718

PATIENT
  Sex: Male
  Weight: 78 kg

DRUGS (14)
  1. NEORAL [Suspect]
     Active Substance: CYCLOSPORINE
     Indication: PRODUCT USED FOR UNKNOWN INDICATION
     Route: 065
  2. PLAQUENIL [Suspect]
     Active Substance: HYDROXYCHLOROQUINE SULFATE
     Indication: PRODUCT USED FOR UNKNOWN INDICATION
     Route: 065
  3. ENSTILAR [Suspect]
     Active Substance: BETAMETHASONE DIPROPIONATE\CALCIPOTRIENE HYDRATE
     Indication: SKIN DISORDER
     Route: 061
  4. COSENTYX [Suspect]
     Active Substance: SECUKINUMAB
     Indication: PRODUCT USED FOR UNKNOWN INDICATION
     Dosage: UNK
     Route: 065
     Dates: end: 201812
  5. METHOTREXATE. [Suspect]
     Active Substance: METHOTREXATE
     Indication: PRODUCT USED FOR UNKNOWN INDICATION
     Dosage: 25 MG, QW
     Route: 065
  6. DOXYCYCLINE. [Suspect]
     Active Substance: DOXYCYCLINE
     Indication: PRODUCT USED FOR UNKNOWN INDICATION
     Dosage: UNK
     Route: 065
  7. SULPHASALAZINE [Suspect]
     Active Substance: SULFASALAZINE
     Indication: PRODUCT USED FOR UNKNOWN INDICATION
     Dosage: UNK
     Route: 065
  8. MELOXICAM. [Suspect]
     Active Substance: MELOXICAM
     Indication: PRODUCT USED FOR UNKNOWN INDICATION
     Route: 065
  9. HUMIRA [Suspect]
     Active Substance: ADALIMUMAB
     Indication: PSORIASIS
     Route: 065
  10. PREDNISONE. [Suspect]
     Active Substance: PREDNISONE
     Indication: ARTHRITIS
     Dosage: 25 MG (OVER 15 DAYS)
     Route: 048
  11. ARAVA [Suspect]
     Active Substance: LEFLUNOMIDE
     Indication: ARTHRITIS
     Dosage: UNK
     Route: 065
     Dates: end: 201512
  12. ALENDRONATE SODIUM TRIHYDRATE [Suspect]
     Active Substance: ALENDRONATE SODIUM
     Indication: PRODUCT USED FOR UNKNOWN INDICATION
     Route: 065
  13. HUMIRA [Suspect]
     Active Substance: ADALIMUMAB
     Indication: PSORIATIC ARTHROPATHY
     Dosage: 40 MG (FORTNIGHTLY)
     Route: 065
  14. ENBREL [Suspect]
     Active Substance: ETANERCEPT
     Indication: PRODUCT USED FOR UNKNOWN INDICATION
     Dosage: 50 MG, QW
     Route: 065

REACTIONS (38)
  - Uveitis [Unknown]
  - Joint effusion [Unknown]
  - Viral infection [Unknown]
  - Folliculitis [Recovering/Resolving]
  - Rash [Not Recovered/Not Resolved]
  - Liver function test abnormal [Unknown]
  - Adverse drug reaction [Unknown]
  - Granuloma annulare [Recovering/Resolving]
  - Papule [Unknown]
  - Nasal congestion [Unknown]
  - Rosacea [Recovering/Resolving]
  - Skin exfoliation [Unknown]
  - Back pain [Recovering/Resolving]
  - Osteoporosis [Unknown]
  - Diarrhoea [Unknown]
  - Cutaneous sarcoidosis [Unknown]
  - Squamous cell carcinoma of skin [Unknown]
  - Furuncle [Unknown]
  - Arthralgia [Unknown]
  - Mobility decreased [Recovering/Resolving]
  - Skin infection [Unknown]
  - Arthritis [Unknown]
  - Synovial cyst [Unknown]
  - Skin lesion [Unknown]
  - Psoriasis [Unknown]
  - Psoriatic arthropathy [Unknown]
  - Treatment failure [Unknown]
  - Granulomatous dermatitis [Unknown]
  - Synovitis [Unknown]
  - Joint swelling [Unknown]
  - Oropharyngeal pain [Unknown]
  - Actinic keratosis [Unknown]
  - Pain [Recovering/Resolving]
  - Drug ineffective [Unknown]
  - Autoimmune hepatitis [Unknown]
  - Lupus-like syndrome [Unknown]
  - Loose body in joint [Unknown]
  - Acanthosis [Unknown]

NARRATIVE: CASE EVENT DATE: 2003
